FAERS Safety Report 10707318 (Version 1)
Quarter: 2015Q1

REPORT INFORMATION
  Report Type: Spontaneous
  Country: US (occurrence: US)
  Receive Date: 20150113
  Receipt Date: 20150113
  Transmission Date: 20150721
  Serious: Yes (Death)
  Sender: FDA-Public Use
  Company Number: US-ASTRAZENECA-2015SE01392

PATIENT
  Age: 54 Year
  Sex: Female

DRUGS (10)
  1. SALICYLATE [Suspect]
     Active Substance: SALICYLIC ACID
     Route: 048
  2. DESFENLAFAXINE [Suspect]
     Active Substance: DESVENLAFAXINE
     Route: 048
  3. ACETAMINOPHEN/HYDROCODONE [Suspect]
     Active Substance: ACETAMINOPHEN\HYDROCODONE
     Route: 048
  4. QUETIAPINE [Suspect]
     Active Substance: QUETIAPINE
     Route: 048
  5. BETA BLOCKER [Suspect]
     Active Substance: UNSPECIFIED INGREDIENT
     Route: 048
  6. SIMVASTATIN. [Suspect]
     Active Substance: SIMVASTATIN
     Route: 048
  7. CARVEDILOL. [Suspect]
     Active Substance: CARVEDILOL
     Route: 048
  8. ANGIOTENSIN CONVERTING ENZYME INHIBITOR (ACE INHIBITOR) [Suspect]
     Active Substance: UNSPECIFIED INGREDIENT
     Route: 048
  9. BUPROPION [Suspect]
     Active Substance: BUPROPION
     Route: 048
  10. WARFARIN [Suspect]
     Active Substance: WARFARIN
     Route: 048

REACTIONS (2)
  - Toxicity to various agents [Fatal]
  - Completed suicide [Fatal]
